FAERS Safety Report 12705825 (Version 1)
Quarter: 2016Q3

REPORT INFORMATION
  Report Type: Spontaneous
  Country: US (occurrence: US)
  Receive Date: 20160901
  Receipt Date: 20160901
  Transmission Date: 20161109
  Serious: No
  Sender: FDA-Public Use
  Company Number: US-AMGEN-USASP2016111571

PATIENT
  Age: 7 Year
  Sex: Female

DRUGS (1)
  1. ENBREL [Suspect]
     Active Substance: ETANERCEPT
     Indication: JUVENILE IDIOPATHIC ARTHRITIS
     Dosage: 0.7 ML, QWK
     Route: 065
     Dates: start: 2015

REACTIONS (4)
  - Injection site erythema [Unknown]
  - Injection site rash [Unknown]
  - Injection site mass [Unknown]
  - Injection site induration [Unknown]
